FAERS Safety Report 6475802-0 (Version None)
Quarter: 2009Q4

REPORT INFORMATION
  Report Type: 
  Country: None (occurrence: None)
  Receive Date: 20091204
  Receipt Date: 20091123
  Transmission Date: 20100525
  Serious: Yes (Hospitalization, Other)
  Sender: FDA-Public Use
  Company Number: US-ELI_LILLY_AND_COMPANY-US200911006143

PATIENT
  Age: 62 Year
  Sex: Male

DRUGS (24)
  1. CYMBALTA [Suspect]
     Indication: DIABETIC NEUROPATHY
     Dosage: 60 MG, DAILY (1/D)
     Route: 065
  2. AMIODARONE HCL [Concomitant]
     Dosage: UNK, UNKNOWN
     Route: 065
  3. ASPIRIN [Concomitant]
     Dosage: UNK, UNKNOWN
     Route: 065
  4. CEFTRIAXONE [Concomitant]
     Dosage: UNK, UNKNOWN
     Route: 065
  5. PLAVIX [Concomitant]
     Dosage: UNK, UNKNOWN
     Route: 065
  6. DIGOXIN [Concomitant]
     Dosage: UNK, UNKNOWN
     Route: 065
  7. FAMOTIDINE [Concomitant]
     Dosage: UNK, UNKNOWN
     Route: 065
  8. HEPARIN [Concomitant]
     Dosage: UNK, UNKNOWN
     Route: 065
  9. HYDROXYUREA [Concomitant]
     Dosage: UNK, UNKNOWN
     Route: 065
  10. SYNTHROID [Concomitant]
     Dosage: UNK, UNKNOWN
     Route: 065
  11. SOLU-MEDROL [Concomitant]
     Dosage: UNK, UNKNOWN
     Route: 065
  12. METOPROLOL [Concomitant]
     Dosage: UNK, UNKNOWN
     Route: 065
  13. CENTRUM SILVER [Concomitant]
     Dosage: UNK, UNKNOWN
     Route: 065
  14. NITRO-BID [Concomitant]
     Dosage: UNK, UNKNOWN
     Route: 065
  15. SIMVASTATIN [Concomitant]
     Dosage: UNK, UNKNOWN
     Route: 065
  16. SPIRONOLACTONE [Concomitant]
     Dosage: UNK, UNKNOWN
     Route: 065
  17. SUCRALFATE [Concomitant]
     Dosage: UNK, UNKNOWN
     Route: 065
  18. TEMAZEPAM [Concomitant]
     Dosage: UNK, UNKNOWN
     Route: 065
  19. VANCOMYCIN [Concomitant]
     Dosage: UNK, UNKNOWN
     Route: 065
  20. DUONEB [Concomitant]
     Dosage: UNK, UNKNOWN
     Route: 065
  21. BENADRYL [Concomitant]
     Dosage: UNK, UNKNOWN
     Route: 065
  22. ATIVAN [Concomitant]
     Dosage: UNK, UNKNOWN
     Route: 065
  23. DEMEROL [Concomitant]
     Dosage: UNK, UNKNOWN
     Route: 065
  24. PHENERGAN HCL [Concomitant]
     Dosage: UNK, UNKNOWN
     Route: 065

REACTIONS (2)
  - GASTROINTESTINAL TUBE INSERTION [None]
  - HOSPITALISATION [None]
